FAERS Safety Report 5202043-7 (Version None)
Quarter: 2007Q1

REPORT INFORMATION
  Report Type: 
  Country: None (occurrence: None)
  Receive Date: 20070103
  Receipt Date: 20061218
  Transmission Date: 20070707
  Serious: Yes (Other)
  Sender: FDA-Public Use
  Company Number: BR-1160164

PATIENT

DRUGS (1)
  1. VIGAMOX (MOXIFLOXACIN HYDROCHLORIDE) 0.5% SOLUTION [Suspect]
     Dosage: EYE DROPS, SOLUTION, OPHTHALMIC
     Route: 047

REACTIONS (1)
  - ENDOPHTHALMITIS [None]
